FAERS Safety Report 21613727 (Version 2)
Quarter: 2022Q4

REPORT INFORMATION
  Report Type: Spontaneous
  Country: US (occurrence: None)
  Receive Date: 20221118
  Receipt Date: 20221207
  Transmission Date: 20230113
  Serious: Yes (Death)
  Sender: FDA-Public Use
  Company Number: US-ROCHE-3221602

PATIENT
  Age: 79 Year
  Sex: Female

DRUGS (4)
  1. ACTEMRA [Suspect]
     Active Substance: TOCILIZUMAB
     Indication: Systemic scleroderma
     Dosage: STRENGTH: 162 MG/0.9ML
     Route: 058
     Dates: start: 20220908
  2. ACTEMRA [Suspect]
     Active Substance: TOCILIZUMAB
  3. OFEV [Concomitant]
     Active Substance: NINTEDANIB
     Indication: Idiopathic pulmonary fibrosis
  4. OFEV [Concomitant]
     Active Substance: NINTEDANIB
     Indication: Interstitial lung disease

REACTIONS (3)
  - Death [Fatal]
  - Illness [Unknown]
  - Infection [Unknown]

NARRATIVE: CASE EVENT DATE: 20221105
